FAERS Safety Report 7429590-1 (Version None)
Quarter: 2011Q2

REPORT INFORMATION
  Report Type: 
  Country: None (occurrence: None)
  Receive Date: 20110421
  Receipt Date: 20110106
  Transmission Date: 20111010
  Serious: Yes (Hospitalization, Other)
  Sender: FDA-Public Use
  Company Number: B0693180A

PATIENT
  Sex: Male
  Weight: 77.3 kg

DRUGS (11)
  1. NEUPOGEN [Concomitant]
     Indication: NEUTROPENIA
     Dosage: 263UG PER DAY
     Route: 058
     Dates: start: 20101108
  2. SIMVASTATIN [Concomitant]
     Indication: HYPERCHOLESTEROLAEMIA
     Dosage: 30MG PER DAY
     Route: 048
     Dates: start: 19960101
  3. CHLORAMBUCIL [Suspect]
     Indication: CHRONIC LYMPHOCYTIC LEUKAEMIA
     Route: 065
     Dates: start: 20101025
  4. ASPIRIN [Concomitant]
     Indication: PROPHYLAXIS
     Dosage: 75MG PER DAY
     Route: 048
     Dates: start: 19960101
  5. TIOTROPIUM [Concomitant]
     Indication: ASTHMA
     Route: 055
     Dates: start: 20050101
  6. LANSOPRAZOLE [Concomitant]
     Indication: PROPHYLAXIS
     Dosage: 30MG PER DAY
     Route: 048
     Dates: start: 19960101
  7. ENALAPRIL MALEATE [Concomitant]
     Indication: HYPERTENSION
     Dosage: 5MG TWICE PER DAY
     Route: 048
     Dates: start: 20060101
  8. PANADOL [Concomitant]
     Indication: BACK PAIN
     Dosage: 100MG AS REQUIRED
     Route: 048
     Dates: start: 20060101
  9. AMLODIPINE [Concomitant]
     Indication: HYPERTENSION
     Dosage: 5MG PER DAY
     Route: 048
     Dates: start: 20060101
  10. ALBUTEROL SULFATE AUTOHALER [Concomitant]
     Indication: ASTHMA
     Route: 055
     Dates: start: 20050101
  11. BENDROFLUAZIDE [Concomitant]

REACTIONS (4)
  - MALAISE [None]
  - LETHARGY [None]
  - NEUTROPENIA [None]
  - NEUTROPENIC INFECTION [None]
